FAERS Safety Report 7808001-8 (Version None)
Quarter: 2011Q4

REPORT INFORMATION
  Report Type: 
  Country: None (occurrence: None)
  Receive Date: 20111011
  Receipt Date: 20111011
  Transmission Date: 20120403
  Serious: No
  Sender: FDA-Public Use
  Company Number: None

PATIENT
  Sex: Female

DRUGS (1)
  1. FORTEO [Suspect]
     Indication: OSTEOPOROSIS
     Dosage: 20MCG
     Route: 058

REACTIONS (3)
  - LIP OEDEMA [None]
  - CHAPPED LIPS [None]
  - LIP HAEMORRHAGE [None]
